FAERS Safety Report 7570934-8 (Version None)
Quarter: 2011Q2

REPORT INFORMATION
  Report Type: 
  Country: None (occurrence: None)
  Receive Date: 20110622
  Receipt Date: 20110622
  Transmission Date: 20111010
  Serious: Yes (Other)
  Sender: FDA-Public Use
  Company Number: None

PATIENT
  Age: 62 Year
  Sex: Female
  Weight: 76.2043 kg

DRUGS (2)
  1. BIOTIN [Suspect]
     Indication: HAIR DISORDER
     Dosage: 1 CAPSULE DAILY
     Dates: start: 20110430, end: 20110525
  2. BIOTIN [Suspect]
     Indication: NAIL DISORDER
     Dosage: 1 CAPSULE DAILY
     Dates: start: 20110430, end: 20110525

REACTIONS (1)
  - HAIR COLOUR CHANGES [None]
